FAERS Safety Report 5012399-6 (Version None)
Quarter: 2006Q2

REPORT INFORMATION
  Report Type: 
  Country: None (occurrence: None)
  Receive Date: 20060526
  Receipt Date: 20060519
  Transmission Date: 20061013
  Serious: Yes (Hospitalization)
  Sender: FDA-Public Use
  Company Number: TR-ABBOTT-06P-161-0333791-00

PATIENT
  Age: 10 Year
  Sex: Male

DRUGS (3)
  1. VALPROIC ACID [Suspect]
     Indication: TONIC CONVULSION
  2. LEVETIRACETAM [Suspect]
     Indication: TONIC CONVULSION
  3. TOPIRAMATE [Suspect]
     Indication: TONIC CONVULSION

REACTIONS (2)
  - DRUG INEFFECTIVE [None]
  - SUBACUTE SCLEROSING PANENCEPHALITIS [None]
